FAERS Safety Report 7411688-5 (Version None)
Quarter: 2011Q2

REPORT INFORMATION
  Report Type: 
  Country: None (occurrence: None)
  Receive Date: 20110413
  Receipt Date: 20110104
  Transmission Date: 20111010
  Serious: Yes (Hospitalization)
  Sender: FDA-Public Use
  Company Number: US-BRISTOL-MYERS SQUIBB COMPANY-15373632

PATIENT
  Age: 63 Year
  Sex: Male

DRUGS (8)
  1. ERBITUX [Suspect]
     Indication: COLON CANCER STAGE IV
     Dosage: NO OF INFUSION RECEIVED-1.
     Route: 042
     Dates: start: 20101108
  2. IRINOTECAN [Concomitant]
     Dates: start: 20080131, end: 20080715
  3. FLUOROURACIL [Concomitant]
     Dates: start: 20080131, end: 20080715
  4. AVASTIN [Concomitant]
     Dates: start: 20080131, end: 20080715
  5. FOLINIC ACID [Concomitant]
     Dates: start: 20080131, end: 20080715
  6. BENADRYL [Concomitant]
     Indication: PREMEDICATION
  7. ANTIHYPERTENSIVE [Concomitant]
  8. LEUCOVORIN [Concomitant]
     Dates: start: 20080131, end: 20080715

REACTIONS (1)
  - HYPERSENSITIVITY [None]
